FAERS Safety Report 9753751 (Version 1)
Quarter: 2013Q4

REPORT INFORMATION
  Report Type: Spontaneous
  Country: US (occurrence: None)
  Receive Date: 20131211
  Receipt Date: 20131211
  Transmission Date: 20140711
  Serious: Yes (Hospitalization)
  Sender: FDA-Public Use
  Company Number: C-13-0697-W

PATIENT
  Age: 63 Year
  Sex: Male
  Weight: 131.54 kg

DRUGS (2)
  1. AZITHROMYCIN TABLETS [Suspect]
     Indication: UPPER RESPIRATORY TRACT INFECTION
     Dosage: 2 DAY 1, 1 DAY 2-5
     Route: 048
     Dates: start: 201206
  2. METFORMIN [Concomitant]

REACTIONS (2)
  - Myocardial infarction [None]
  - Dyspnoea exertional [None]
